FAERS Safety Report 4611767-1 (Version None)
Quarter: 2005Q2

REPORT INFORMATION
  Report Type: 
  Country: None (occurrence: None)
  Receive Date: 20050308
  Receipt Date: 20041206
  Transmission Date: 20051028
  Serious: Yes (Other)
  Sender: FDA-Public Use
  Company Number: 2004UW24932

PATIENT
  Age: 73 Year
  Sex: Male
  Weight: 61.688 kg

DRUGS (10)
  1. CRESTOR [Suspect]
     Indication: BLOOD CHOLESTEROL INCREASED
     Dosage: 5 MG QD PO
     Route: 048
     Dates: start: 20041201
  2. AVANDIA [Concomitant]
  3. GLIPIZIDE [Concomitant]
  4. ASPIRIN [Concomitant]
  5. PLAVIX [Concomitant]
  6. ALTACE [Concomitant]
  7. TOPROL-XL [Concomitant]
  8. FUROSEMIDE [Concomitant]
  9. NITROSTAT [Concomitant]
  10. NITROLINGUAL [Concomitant]

REACTIONS (3)
  - ABDOMINAL PAIN UPPER [None]
  - AMNESIA [None]
  - UNRESPONSIVE TO VERBAL STIMULI [None]
